FAERS Safety Report 21608712 (Version 1)
Quarter: 2022Q4

REPORT INFORMATION
  Report Type: Report from Study
  Country: FR (occurrence: FR)
  Receive Date: 20221117
  Receipt Date: 20221117
  Transmission Date: 20230113
  Serious: Yes (Other)
  Sender: FDA-Public Use
  Company Number: FR-MYLANLABS-2022M1128397

PATIENT
  Age: 8 Decade
  Sex: Male

DRUGS (3)
  1. METHOTREXATE [Suspect]
     Active Substance: METHOTREXATE
     Indication: Neurodermatitis
     Dosage: 25 MILLIGRAM, QW
     Route: 065
     Dates: start: 201911
  2. DULOXETINE [Suspect]
     Active Substance: DULOXETINE
     Indication: Neurodermatitis
     Dosage: UNK
     Route: 065
  3. ALITRETINOIN [Suspect]
     Active Substance: ALITRETINOIN
     Indication: Neurodermatitis
     Dosage: 30 MILLIGRAM, QD
     Route: 065
     Dates: start: 202003

REACTIONS (2)
  - Treatment failure [Unknown]
  - Off label use [Unknown]
